FAERS Safety Report 7362613-7 (Version None)
Quarter: 2011Q1

REPORT INFORMATION
  Report Type: 
  Country: None (occurrence: None)
  Receive Date: 20110320
  Receipt Date: 20100721
  Transmission Date: 20110831
  Serious: Yes (Other)
  Sender: FDA-Public Use
  Company Number: US-BAYER-201016881NA

PATIENT
  Sex: Female
  Weight: 54.545 kg

DRUGS (4)
  1. IBUPROFEN [Concomitant]
  2. YAZ [Suspect]
     Indication: ORAL CONTRACEPTION
     Route: 048
     Dates: start: 20060801, end: 20090201
  3. UNCODEABLE ^UNCLASSIFIABLE^ [Concomitant]
  4. YAZ [Suspect]
     Indication: ENDOMETRIOSIS

REACTIONS (4)
  - DEEP VEIN THROMBOSIS [None]
  - VASODILATATION [None]
  - NECK PAIN [None]
  - VARICOSE VEIN [None]
